FAERS Safety Report 12836540 (Version 1)
Quarter: 2016Q4

REPORT INFORMATION
  Report Type: Spontaneous
  Country: US (occurrence: US)
  Receive Date: 20161011
  Receipt Date: 20161011
  Transmission Date: 20170207
  Serious: No
  Sender: FDA-Public Use
  Company Number: US-TEVA-700112USA

PATIENT

DRUGS (1)
  1. CEFALEXIN [Suspect]
     Active Substance: CEPHALEXIN

REACTIONS (1)
  - Incorrect product storage [Unknown]
